FAERS Safety Report 7243840-6 (Version None)
Quarter: 2011Q1

REPORT INFORMATION
  Report Type: 
  Country: None (occurrence: None)
  Receive Date: 20110125
  Receipt Date: 20101116
  Transmission Date: 20110831
  Serious: No
  Sender: FDA-Public Use
  Company Number: US-BAYER-2010-005450

PATIENT
  Sex: Female

DRUGS (2)
  1. ALEVE (CAPLET) [Suspect]
     Indication: ARTHRITIS
     Dosage: DAILY DOSE 2 DF
     Route: 048
     Dates: start: 20100101
  2. EVISTA CHUGAI [Concomitant]

REACTIONS (1)
  - ARTHRALGIA [None]
